FAERS Safety Report 6585661-3 (Version None)
Quarter: 2010Q1

REPORT INFORMATION
  Report Type: 
  Country: None (occurrence: None)
  Receive Date: 20100217
  Receipt Date: 20100205
  Transmission Date: 20100710
  Serious: Yes (Life-Threatening, Hospitalization, Disabling, Other)
  Sender: FDA-Public Use
  Company Number: JP-PFIZER INC-2009305399

PATIENT
  Age: 76 Year
  Sex: Female
  Weight: 56.3 kg

DRUGS (2)
  1. ZOLOFT [Suspect]
     Indication: DEPRESSION
     Dosage: 25 MG, 2X/DAY
     Route: 048
     Dates: start: 20090728
  2. ZOLOFT [Suspect]
     Dosage: UNK
     Dates: start: 20090711, end: 20090727

REACTIONS (4)
  - ALTERED STATE OF CONSCIOUSNESS [None]
  - CONVULSION [None]
  - GAIT DISTURBANCE [None]
  - PNEUMONIA [None]
